FAERS Safety Report 15633582 (Version 1)
Quarter: 2018Q4

REPORT INFORMATION
  Report Type: Report from Study
  Country: US (occurrence: US)
  Receive Date: 20181119
  Receipt Date: 20181119
  Transmission Date: 20190205
  Serious: Yes (Hospitalization, Other)
  Sender: FDA-Public Use
  Company Number: US-SA-2018SA311825

PATIENT
  Age: 80 Year
  Sex: Female

DRUGS (1)
  1. INSULIN GLARGINE [Suspect]
     Active Substance: INSULIN GLARGINE
     Dosage: 24 U, HS
     Route: 058

REACTIONS (4)
  - Fatigue [Unknown]
  - Apparent death [Unknown]
  - Unevaluable event [Not Recovered/Not Resolved]
  - Coma [Recovered/Resolved]
